FAERS Safety Report 15147457 (Version 1)
Quarter: 2018Q3

REPORT INFORMATION
  Report Type: Spontaneous
  Country: US (occurrence: US)
  Receive Date: 20180716
  Receipt Date: 20180716
  Transmission Date: 20181010
  Serious: No
  Sender: FDA-Public Use
  Company Number: US-TEVA-2018-US-926505

PATIENT
  Age: 61 Year
  Sex: Male

DRUGS (2)
  1. CLONAZEPAM. [Suspect]
     Active Substance: CLONAZEPAM
     Dosage: REPORTED TAKING 0.75MG IN THE MORNING, 0.5 MG IN THE AFTERNOON, AND 0.5 MG IN THE EVENING.
  2. CLONAZEPAM. [Suspect]
     Active Substance: CLONAZEPAM
     Indication: PANIC ATTACK
     Dosage: REPORTED TAKING 0.75MG IN THE MORNING, 0.5 MG IN THE AFTERNOON, AND 0.5 MG IN THE EVENING.

REACTIONS (5)
  - Drug ineffective [Unknown]
  - Chest pain [Unknown]
  - Dyspnoea [Unknown]
  - Abdominal pain upper [Unknown]
  - Panic attack [Unknown]
